FAERS Safety Report 9676300 (Version 2)
Quarter: 2013Q4

REPORT INFORMATION
  Report Type: Spontaneous
  Country: US (occurrence: US)
  Receive Date: 20131107
  Receipt Date: 20131107
  Transmission Date: 20140711
  Serious: Yes (Other)
  Sender: FDA-Public Use
  Company Number: US-GILEAD-2013-0077593

PATIENT
  Age: 60 Year
  Sex: Male

DRUGS (1)
  1. LETAIRIS [Suspect]
     Indication: PRODUCT USED FOR UNKNOWN INDICATION
     Dosage: 10 MG, QD
     Route: 048
     Dates: start: 20121116

REACTIONS (4)
  - Loss of consciousness [Recovered/Resolved]
  - Pulmonary arterial hypertension [Unknown]
  - Memory impairment [Unknown]
  - Dyspnoea [Unknown]
